FAERS Safety Report 15719782 (Version 3)
Quarter: 2020Q1

REPORT INFORMATION
  Report Type: Spontaneous
  Country: US (occurrence: US)
  Receive Date: 20181213
  Receipt Date: 20200108
  Transmission Date: 20200409
  Serious: Yes (Hospitalization, Other)
  Sender: FDA-Public Use
  Company Number: US-PFIZER INC-2018474193

PATIENT
  Age: 69 Year
  Sex: Female

DRUGS (1)
  1. PREMPRO [Suspect]
     Active Substance: ESTROGENS, CONJUGATED\MEDROXYPROGESTERONE ACETATE
     Indication: HOT FLUSH
     Dosage: UNK
     Dates: start: 1992, end: 2002

REACTIONS (3)
  - Breast cancer female [Not Recovered/Not Resolved]
  - Invasive breast carcinoma [Unknown]
  - Post procedural infection [Unknown]

NARRATIVE: CASE EVENT DATE: 20151212
